FAERS Safety Report 9852485 (Version 1)
Quarter: 2014Q1

REPORT INFORMATION
  Report Type: Other
  Country: JP (occurrence: JP)
  Receive Date: 20140129
  Receipt Date: 20140129
  Transmission Date: 20141002
  Serious: Yes (Death)
  Sender: FDA-Public Use
  Company Number: JP-BRISTOL-MYERS SQUIBB COMPANY-20074001

PATIENT
  Age: 41 Year
  Sex: Female

DRUGS (2)
  1. HYDREA [Suspect]
     Indication: ACUTE MYELOID LEUKAEMIA
  2. ARABINOSYLCYTOSINE [Suspect]
     Indication: ACUTE MYELOID LEUKAEMIA

REACTIONS (2)
  - Hepatitis fulminant [Fatal]
  - Herpes simplex [Fatal]
